FAERS Safety Report 7491398-9 (Version None)
Quarter: 2011Q2

REPORT INFORMATION
  Report Type: 
  Country: None (occurrence: None)
  Receive Date: 20110519
  Receipt Date: 20110505
  Transmission Date: 20111010
  Serious: Yes (Hospitalization)
  Sender: FDA-Public Use
  Company Number: PHHY2011ZA39144

PATIENT
  Sex: Female

DRUGS (12)
  1. LIORESAL [Concomitant]
     Dosage: 25 MG, BID
  2. CLONAZEPAM [Concomitant]
     Dosage: 25 MG,
  3. DULOXETINE HYDROCHLORIDE [Concomitant]
     Dosage: 60 MG, UNK
  4. PEXOLA [Concomitant]
     Dosage: 0.25 MG, BID
  5. ASPIRIN [Concomitant]
     Dosage: UNK
  6. FORTEO [Concomitant]
     Indication: OSTEOPOROSIS
  7. SOLU-CORTEF [Concomitant]
     Indication: MULTIPLE SCLEROSIS
  8. ZOLEDRONIC ACID [Suspect]
     Indication: OSTEOPOROSIS
     Dosage: 5 MG,
     Route: 042
     Dates: start: 20110503
  9. VITAMIN E [Concomitant]
     Dosage: UNK
  10. B CAL D [Concomitant]
     Dosage: UNK
  11. CALCIFEROL [Concomitant]
     Dosage: UNK
  12. PIPERONYL BUTOXIDE [Concomitant]
     Indication: MUSCLE RELAXANT THERAPY
     Dosage: 5 MG,

REACTIONS (3)
  - CONFUSIONAL STATE [None]
  - RELAPSING-REMITTING MULTIPLE SCLEROSIS [None]
  - MALAISE [None]
